FAERS Safety Report 12527599 (Version 1)
Quarter: 2016Q3

REPORT INFORMATION
  Report Type: Spontaneous
  Country: BR (occurrence: BR)
  Receive Date: 20160705
  Receipt Date: 20160705
  Transmission Date: 20161109
  Serious: Yes (Other)
  Sender: FDA-Public Use
  Company Number: BR-AKORN PHARMACEUTICALS-2016AKN00406

PATIENT
  Age: 19 Year
  Sex: Male

DRUGS (1)
  1. ISOTRETINOIN [Suspect]
     Active Substance: ISOTRETINOIN
     Indication: ACNE
     Dosage: 40 MG, 1X/DAY (0.54 MG/KG/DAY)
     Route: 065

REACTIONS (3)
  - Excessive granulation tissue [Recovering/Resolving]
  - Ingrowing nail [Recovered/Resolved]
  - Paronychia [Recovering/Resolving]
